FAERS Safety Report 6472876 (Version 5)
Quarter: 2014Q1

REPORT INFORMATION
  Report Type: Spontaneous
  Country: GB (occurrence: GB)
  Receive Date: 20071121
  Receipt Date: 20140319
  Transmission Date: 20141002
  Serious: Yes (Life-Threatening)
  Sender: FDA-Public Use
  Company Number: PHFR2007GB03359

PATIENT
  Age: 19 Year
  Sex: Female

DRUGS (15)
  1. CICLOSPORIN [Suspect]
     Dosage: UNK
  2. CICLOSPORIN [Suspect]
     Dosage: DOSE INCREASED
  3. OMEPRAZOLE [Suspect]
     Dosage: UNK
     Route: 065
  4. ONDANSETRON [Suspect]
     Dosage: 8 MG, TID
     Route: 042
  5. NORETHISTERONE [Suspect]
     Dosage: 5 MG, TID
     Route: 048
  6. ACICLOVIR [Suspect]
     Dosage: UNK
  7. ALLOPURINOL [Suspect]
     Dosage: 300 MG, QD
     Route: 048
  8. CASPOFUNGIN [Suspect]
     Dosage: 70 MG, QD
     Route: 042
  9. CHLORPHENAMINE [Suspect]
     Dosage: 10 MG, QID
     Route: 042
  10. ETOPOPHOS [Suspect]
     Dosage: 4650 MG, DAILY
     Route: 042
     Dates: start: 20070915
  11. KETALAR [Suspect]
     Indication: PAIN
     Dosage: 6 ML, QH
     Route: 042
     Dates: start: 20070921
  12. MORPHINE [Suspect]
     Dosage: UNK
     Route: 042
  13. PARACETAMOL [Suspect]
     Dosage: UNK
  14. TAZOCIN [Suspect]
     Dosage: 4.5 MG, TID
     Route: 042
  15. VORICONAZOLE [Suspect]
     Dosage: 200 MG, BID
     Route: 048

REACTIONS (6)
  - Alanine aminotransferase increased [Not Recovered/Not Resolved]
  - Blood alkaline phosphatase increased [Not Recovered/Not Resolved]
  - Hepatotoxicity [Unknown]
  - Dilatation intrahepatic duct acquired [Unknown]
  - Venoocclusive liver disease [Unknown]
  - Blood bilirubin increased [Not Recovered/Not Resolved]
